FAERS Safety Report 7628567-0 (Version None)
Quarter: 2011Q3

REPORT INFORMATION
  Report Type: 
  Country: None (occurrence: None)
  Receive Date: 20110711
  Receipt Date: 20110531
  Transmission Date: 20111222
  Serious: Yes (Other)
  Sender: FDA-Public Use
  Company Number: 2011028755

PATIENT
  Age: 55 Year
  Sex: Female
  Weight: 68.9467 kg

DRUGS (10)
  1. ESTRACE [Concomitant]
  2. SINGULAIR [Concomitant]
  3. LISINOPRIL [Concomitant]
  4. ADVAIR DISKUS 100/50 [Concomitant]
  5. ZEMAIRA [Suspect]
     Indication: ALPHA-1 ANTI-TRYPSIN DEFICIENCY
     Dosage: (60 MG/KG 1X/WEEK, INFUSED 0.08ML PER KG PER MIN (5.7ML PER MIN) INTRAVENOUS (NOT OTHERWISE SPECIFIE
     Route: 042
     Dates: start: 20090801
  6. MUCINEX [Concomitant]
  7. ZEMAIRA [Suspect]
     Indication: CHRONIC OBSTRUCTIVE PULMONARY DISEASE
     Dosage: (60 MG/KG 1X/WEEK)
  8. LEXAPRO [Concomitant]
  9. SPIRIVA [Concomitant]
  10. PRO AIR (PROCATEROL HYDROCHLORIDE) [Concomitant]

REACTIONS (3)
  - CHEST DISCOMFORT [None]
  - SINUSITIS [None]
  - LOWER RESPIRATORY TRACT INFECTION [None]
